FAERS Safety Report 7105763-2 (Version None)
Quarter: 2010Q4

REPORT INFORMATION
  Report Type: 
  Country: None (occurrence: None)
  Receive Date: 20101116
  Receipt Date: 20101103
  Transmission Date: 20110411
  Serious: Yes (Hospitalization, Other)
  Sender: FDA-Public Use
  Company Number: PHHY2010TW73110

PATIENT
  Sex: Male
  Weight: 71.8 kg

DRUGS (3)
  1. EXJADE [Suspect]
     Dosage: 1500 MG DAILY
     Route: 048
     Dates: start: 20101005, end: 20101010
  2. GLUCOPHAGE [Concomitant]
     Indication: DIABETES MELLITUS
     Dosage: 1000 MG, UNK
  3. GLIPIZIDE [Concomitant]
     Indication: DIABETES MELLITUS
     Dosage: 10 MG, UNK

REACTIONS (7)
  - CHOLELITHIASIS [None]
  - HAEMOSIDEROSIS [None]
  - HEPATITIS [None]
  - HYPERBILIRUBINAEMIA [None]
  - JAUNDICE [None]
  - PYREXIA [None]
  - SPLENOMEGALY [None]
